FAERS Safety Report 6217855-0 (Version None)
Quarter: 2009Q2

REPORT INFORMATION
  Report Type: 
  Country: None (occurrence: None)
  Receive Date: 20090608
  Receipt Date: 20090602
  Transmission Date: 20091009
  Serious: Yes (Hospitalization)
  Sender: FDA-Public Use
  Company Number: CA-ROCHE-597074

PATIENT
  Sex: Female
  Weight: 85.6 kg

DRUGS (6)
  1. PEG-INTERFERON ALFA 2A (RO 25-8310) [Suspect]
     Dosage: FORM: PRE-FILLED SYRINGE PER PROTOCOL, DOSAGE FORM: 0.5 ML,DATE OF LAST DOSE PRIOR TO SAE:07 NOV 08.
     Route: 058
     Dates: start: 20080201
  2. RIBAVIRIN [Suspect]
     Dosage: THERAPY PERMANENTLY STOPPED.
     Route: 048
     Dates: start: 20080201, end: 20081006
  3. DIOVAN HCT [Concomitant]
     Route: 048
     Dates: start: 20040501
  4. PREVACID [Concomitant]
     Route: 048
     Dates: start: 20040501
  5. EPO [Concomitant]
     Route: 058
     Dates: start: 20080223
  6. FERROUS GLUCONATE [Concomitant]
     Route: 048
     Dates: start: 20080401

REACTIONS (2)
  - ANAEMIA [None]
  - TRANSFUSION REACTION [None]
